FAERS Safety Report 5933796-8 (Version None)
Quarter: 2008Q4

REPORT INFORMATION
  Report Type: 
  Country: None (occurrence: None)
  Receive Date: 20081029
  Receipt Date: 20081021
  Transmission Date: 20090506
  Serious: Yes (Hospitalization)
  Sender: FDA-Public Use
  Company Number: US-KINGPHARMUSA00001-K200801209

PATIENT

DRUGS (18)
  1. ALTACE [Suspect]
     Dosage: 1.25 MG, QD
     Route: 048
     Dates: start: 20080609
  2. ASPEGIC 325 [Suspect]
     Indication: STENT PLACEMENT
     Dosage: 250 MG POWDER FOR ORAL SOLUTION, SINGLE
     Route: 048
     Dates: start: 20080606, end: 20080606
  3. CORDARONE [Suspect]
     Dosage: 200 MG, QD
     Route: 048
     Dates: start: 20080606
  4. PLAVIX [Suspect]
     Indication: STENT PLACEMENT
     Dosage: 75 MG, QD
     Route: 048
     Dates: start: 20080606
  5. KARDEGIC                           /00002703/ [Suspect]
     Dosage: 75 MG, QD
     Route: 048
     Dates: start: 20080607
  6. PREVISCAN                          /00261401/ [Suspect]
     Dosage: 10 MG, UNK
     Route: 048
  7. TRAMADOL HCL [Suspect]
     Dosage: 50 MG, QD
     Route: 048
     Dates: start: 20080610
  8. AERIUS                             /01398501/ [Concomitant]
     Dosage: 5 MG, UNK
     Route: 048
  9. CALCIDIA [Concomitant]
     Dosage: 1.54 G, UNK
     Route: 048
  10. DOLIPRANE [Concomitant]
     Dosage: 3000 MG, UNK
     Route: 048
  11. DUSPATALIN                         /00139402/ [Concomitant]
     Dosage: 600 MG, UNK
     Route: 048
  12. HEMIGOXINE [Concomitant]
     Dosage: .125 MG, UNK
     Route: 048
  13. KAYEXALATE [Concomitant]
     Dosage: 1 TBSP, UNK
     Route: 048
  14. LASIX [Concomitant]
     Dosage: 500 MG, UNK
     Route: 048
  15. NUCTALON [Concomitant]
     Dosage: 2 MG, UNK
     Route: 048
  16. ROCALTROL [Concomitant]
     Dosage: .5 UG, UNK
     Route: 048
  17. SERMION                            /00396401/ [Concomitant]
     Dosage: 5 MG, UNK
     Route: 048
  18. ZOCOR [Concomitant]
     Dosage: 20 MG, UNK
     Route: 048

REACTIONS (1)
  - INTERNATIONAL NORMALISED RATIO INCREASED [None]
